FAERS Safety Report 6043318-1 (Version None)
Quarter: 2009Q1

REPORT INFORMATION
  Report Type: 
  Country: None (occurrence: None)
  Receive Date: 20090115
  Receipt Date: 20081111
  Transmission Date: 20090719
  Serious: Yes (Hospitalization)
  Sender: FDA-Public Use
  Company Number: CHPA2008US19761

PATIENT
  Sex: Male

DRUGS (2)
  1. VOLTAREN [Suspect]
  2. ALCOHOL (ETHANOL) [Suspect]

REACTIONS (2)
  - ALCOHOL USE [None]
  - HEADACHE [None]
